FAERS Safety Report 12784478 (Version 4)
Quarter: 2016Q4

REPORT INFORMATION
  Report Type: Spontaneous
  Country: US (occurrence: US)
  Receive Date: 20160927
  Receipt Date: 20161026
  Transmission Date: 20170207
  Serious: Yes (Hospitalization)
  Sender: FDA-Public Use
  Company Number: US-PFIZER INC-2016440267

PATIENT
  Age: 49 Year
  Sex: Female
  Weight: 79 kg

DRUGS (2)
  1. ADVIL [Suspect]
     Active Substance: IBUPROFEN
     Indication: HEADACHE
     Dosage: UNK, AS NEEDED
     Dates: start: 2012
  2. MIRALAX [Concomitant]
     Active Substance: POLYETHYLENE GLYCOL 3350
     Indication: CHANGE OF BOWEL HABIT
     Dosage: 5-8 DOSES, DAILY

REACTIONS (7)
  - Rash generalised [Not Recovered/Not Resolved]
  - Pelvic prolapse [Unknown]
  - Colitis [Unknown]
  - Skin lesion [Not Recovered/Not Resolved]
  - Skin discolouration [Not Recovered/Not Resolved]
  - Endometriosis [Unknown]
  - Irritable bowel syndrome [Unknown]

NARRATIVE: CASE EVENT DATE: 2014
